FAERS Safety Report 7683193-2 (Version None)
Quarter: 2011Q3

REPORT INFORMATION
  Report Type: 
  Country: None (occurrence: None)
  Receive Date: 20110815
  Receipt Date: 20110812
  Transmission Date: 20111222
  Serious: No
  Sender: FDA-Public Use
  Company Number: US-PFIZER INC-2011186317

PATIENT
  Sex: Female
  Weight: 57 kg

DRUGS (2)
  1. EFFEXOR XR [Suspect]
     Indication: DEPRESSION
     Dosage: 37.5 MG, 1X/DAY
     Route: 048
     Dates: start: 20110601, end: 20110701
  2. TRAZODONE HCL [Suspect]
     Indication: DEPRESSION
     Dosage: UNK
     Dates: end: 20110601

REACTIONS (5)
  - WRONG TECHNIQUE IN DRUG USAGE PROCESS [None]
  - FEELING ABNORMAL [None]
  - SEDATION [None]
  - DIZZINESS [None]
  - HEADACHE [None]
